FAERS Safety Report 7312679-5 (Version None)
Quarter: 2011Q1

REPORT INFORMATION
  Report Type: 
  Country: None (occurrence: None)
  Receive Date: 20110224
  Receipt Date: 20101108
  Transmission Date: 20110831
  Serious: No
  Sender: FDA-Public Use
  Company Number: US-ASTRAZENECA-2010SE53196

PATIENT
  Age: 35 Year
  Sex: Female

DRUGS (1)
  1. VIMOVO [Suspect]
     Indication: JOINT SWELLING
     Route: 048
     Dates: start: 20101103

REACTIONS (3)
  - UTERINE SPASM [None]
  - INCORRECT DOSE ADMINISTERED [None]
  - OEDEMA PERIPHERAL [None]
